FAERS Safety Report 15686878 (Version 3)
Quarter: 2019Q1

REPORT INFORMATION
  Report Type: Spontaneous
  Country: US (occurrence: US)
  Receive Date: 20181204
  Receipt Date: 20190114
  Transmission Date: 20190417
  Serious: No
  Sender: FDA-Public Use
  Company Number: US-B.I. PHARMACEUTICALS,INC./RIDGEFIELD-2018-BI-057427

PATIENT
  Sex: Male

DRUGS (14)
  1. FOLIC ACID. [Concomitant]
     Active Substance: FOLIC ACID
     Indication: PRODUCT USED FOR UNKNOWN INDICATION
     Dosage: QD;  FORM STRENGTH: 1 MG; FORMULATION: TABLET
     Route: 048
  2. DULERA [Concomitant]
     Active Substance: FORMOTEROL FUMARATE DIHYDRATE\MOMETASONE FUROATE
     Indication: CHRONIC OBSTRUCTIVE PULMONARY DISEASE
     Dosage: 2 PUFFS BID;  FORMULATION: INHALATION AEROSOL;
     Route: 055
  3. POTASSIUM [Concomitant]
     Active Substance: POTASSIUM
     Indication: PRODUCT USED FOR UNKNOWN INDICATION
     Dosage: QD;  FORM STRENGTH: 20 MEQ; FORMULATION: TABLET
     Route: 048
     Dates: start: 20150101
  4. TAMSULOSIN [Concomitant]
     Active Substance: TAMSULOSIN
     Indication: PRODUCT USED FOR UNKNOWN INDICATION
     Dosage: QD;  FORM STRENGTH: 0.4 MG; FORMULATION: CAPSULE
     Route: 048
  5. WARFARIN [Concomitant]
     Active Substance: WARFARIN
     Indication: ATRIAL FIBRILLATION
     Dosage: 1 MG QD 4 DAYS/WEEK ?FORMULATION: TABLET;
     Route: 048
  6. ALBUTEROL SULFATE. [Concomitant]
     Active Substance: ALBUTEROL SULFATE
     Indication: CHRONIC OBSTRUCTIVE PULMONARY DISEASE
     Dosage: PRN;  FORMULATION: INHALATION SOLUTION;
     Route: 055
     Dates: start: 2010
  7. ZEBETA [Concomitant]
     Active Substance: BISOPROLOL FUMARATE
     Indication: PRODUCT USED FOR UNKNOWN INDICATION
     Dosage: QD;  FORM STRENGTH: 2.5 MG; FORMULATION: TABLET
     Route: 048
     Dates: start: 20170101
  8. OMEPRAZOLE. [Concomitant]
     Active Substance: OMEPRAZOLE
     Indication: GASTROOESOPHAGEAL REFLUX DISEASE
     Dosage: QD;  FORM STRENGTH: 20 MG; FORMULATION: TABLET
     Route: 048
  9. WARFARIN [Concomitant]
     Active Substance: WARFARIN
     Dosage: 2 MG QD 3 DAYS/WEEK;  FORMULATION: TABLET;
     Route: 048
  10. IMDUR [Concomitant]
     Active Substance: ISOSORBIDE MONONITRATE
     Indication: PRODUCT USED FOR UNKNOWN INDICATION
     Dosage: QD;  FORM STRENGTH: 30 MG; FORMULATION: TABLET
     Route: 048
     Dates: start: 20180101
  11. ASPIRIN. [Concomitant]
     Active Substance: ASPIRIN
     Indication: PRODUCT USED FOR UNKNOWN INDICATION
     Dosage: QD;  FORM STRENGTH: 81 MG; FORMULATION: TABLET
     Route: 048
  12. HYDRALAZINE [Concomitant]
     Active Substance: HYDRALAZINE HYDROCHLORIDE
     Indication: PRODUCT USED FOR UNKNOWN INDICATION
     Dosage: QD;  FORM STRENGTH: 10 MG; FORMULATION: TABLET
     Route: 048
     Dates: start: 20180101
  13. SPIRIVA [Suspect]
     Active Substance: TIOTROPIUM BROMIDE MONOHYDRATE
     Indication: CHRONIC OBSTRUCTIVE PULMONARY DISEASE
     Dosage: 1 CAPSULE 1 TIME DAILY;  FORM STRENGTH: 18 MCG; FORMULATION: CAPSULE
     Route: 055
     Dates: start: 2008
  14. FUROSEMIDE. [Concomitant]
     Active Substance: FUROSEMIDE
     Indication: PRODUCT USED FOR UNKNOWN INDICATION
     Dosage: QD;  FORM STRENGTH: 40 MG; FORMULATION: TABLET
     Route: 048

REACTIONS (5)
  - Lung disorder [Not Recovered/Not Resolved]
  - Product quality issue [Unknown]
  - Extra dose administered [Recovered/Resolved]
  - Lymphadenopathy [Not Recovered/Not Resolved]
  - Lung disorder [Not Recovered/Not Resolved]

NARRATIVE: CASE EVENT DATE: 2016
